FAERS Safety Report 10330362 (Version 1)
Quarter: 2014Q3

REPORT INFORMATION
  Report Type: Other
  Country: TN (occurrence: TN)
  Receive Date: 20140722
  Receipt Date: 20140722
  Transmission Date: 20150326
  Serious: Yes (Hospitalization)
  Sender: FDA-Public Use
  Company Number: TN-LUPIN PHARMACEUTICALS INC.-2014-01337

PATIENT
  Age: 16 Year
  Sex: Female

DRUGS (2)
  1. CIPROFLOXACIN. [Suspect]
     Active Substance: CIPROFLOXACIN
     Indication: URINARY TRACT INFECTION
     Route: 065
  2. MEFENAMIC ACID. [Interacting]
     Active Substance: MEFENAMIC ACID
     Indication: URINARY TRACT INFECTION
     Route: 065

REACTIONS (2)
  - Drug interaction [Recovering/Resolving]
  - Crystal nephropathy [Recovering/Resolving]
